FAERS Safety Report 20216103 (Version 1)
Quarter: 2021Q4

REPORT INFORMATION
  Report Type: Spontaneous
  Country: US (occurrence: None)
  Receive Date: 20211221
  Receipt Date: 20211221
  Transmission Date: 20220303
  Serious: Yes (Hospitalization)
  Sender: FDA-Public Use
  Company Number: None

PATIENT
  Age: 73 Year
  Sex: Female

DRUGS (8)
  1. MYCOPHENOLIC ACID [Suspect]
     Active Substance: MYCOPHENOLIC ACID
     Indication: Acute kidney injury
     Route: 048
     Dates: start: 20180824
  2. CARVEDILOL [Concomitant]
     Active Substance: CARVEDILOL
  3. CELLCEPT [Concomitant]
     Active Substance: MYCOPHENOLATE MOFETIL
  4. CLONIDINE [Concomitant]
     Active Substance: CLONIDINE
  5. LASIX [Concomitant]
     Active Substance: FUROSEMIDE
  6. LEVEMIR INJ FLEXTOUC [Concomitant]
  7. LEVOTHYROXINE [Concomitant]
     Active Substance: LEVOTHYROXINE
  8. PREDNISONE [Concomitant]
     Active Substance: PREDNISONE

REACTIONS (1)
  - Fall [None]

NARRATIVE: CASE EVENT DATE: 20211213
